FAERS Safety Report 7517120-5 (Version None)
Quarter: 2011Q2

REPORT INFORMATION
  Report Type: 
  Country: None (occurrence: None)
  Receive Date: 20110601
  Receipt Date: 20110524
  Transmission Date: 20111010
  Serious: Yes (Other)
  Sender: FDA-Public Use
  Company Number: JP-UCBSA-031454

PATIENT
  Sex: Female

DRUGS (2)
  1. XYZAL [Suspect]
     Indication: RHINITIS ALLERGIC
     Route: 048
     Dates: start: 20110331, end: 20110413
  2. FLUNASE [Concomitant]
     Dosage: DOSAGE FORM : NSPY, FOR PEDIATRIC
     Route: 045

REACTIONS (1)
  - METRORRHAGIA [None]
